FAERS Safety Report 8618766-3 (Version None)
Quarter: 2012Q3

REPORT INFORMATION
  Report Type: 
  Country: None (occurrence: None)
  Receive Date: 20120824
  Receipt Date: 20120810
  Transmission Date: 20120928
  Serious: Yes (Hospitalization)
  Sender: FDA-Public Use
  Company Number: US-RANBAXY-2012US-59240

PATIENT
  Age: 55 Year
  Sex: Female

DRUGS (9)
  1. MORPHINE [Suspect]
     Dosage: 40 MG
     Route: 042
  2. MORPHINE [Suspect]
     Indication: BREAKTHROUGH PAIN
     Dosage: UNK
     Route: 042
  3. DULOXETINE HYDROCHLORIDE [Concomitant]
     Indication: PRODUCT USED FOR UNKNOWN INDICATION
     Route: 065
  4. FENTANYL [Suspect]
     Indication: BREAKTHROUGH PAIN
     Dosage: 50 A?G/HOUR
     Route: 062
  5. ROPIVACAINE HYDROCHLORIDE [Concomitant]
     Indication: PRODUCT USED FOR UNKNOWN INDICATION
     Route: 065
  6. HYDROCODONE BITARTRATE AND ACETAMINOPHEN [Suspect]
     Indication: BREAKTHROUGH PAIN
     Dosage: 6 TABLETS,DAILY
     Route: 065
  7. FENTANYL [Suspect]
     Dosage: 75 A?G/HOUR
     Route: 062
  8. KETAMINE HCL [Suspect]
     Indication: PRODUCT USED FOR UNKNOWN INDICATION
     Route: 065
  9. METHADONE HYDROCHLORIDE [Suspect]
     Indication: BREAKTHROUGH PAIN
     Dosage: 10 MG, BID
     Route: 048

REACTIONS (2)
  - MENTAL STATUS CHANGES [None]
  - DELIRIUM [None]
